FAERS Safety Report 13176781 (Version 2)
Quarter: 2019Q4

REPORT INFORMATION
  Report Type: Spontaneous
  Country: US (occurrence: US)
  Receive Date: 20170201
  Receipt Date: 20191014
  Transmission Date: 20200122
  Serious: Yes (Death)
  Sender: FDA-Public Use
  Company Number: US-CELGENEUS-USA-2017019070

PATIENT
  Age: 62 Year
  Sex: Male

DRUGS (11)
  1. CISPLATIN. [Concomitant]
     Active Substance: CISPLATIN
     Dosage: 37.5 MILLIGRAM/SQ. METER
     Route: 041
  2. DEXAMETHASONE. [Concomitant]
     Active Substance: DEXAMETHASONE
     Dosage: 8 MILLIGRAM
     Route: 048
  3. CISPLATIN. [Concomitant]
     Active Substance: CISPLATIN
     Indication: PANCREATIC CARCINOMA STAGE IV
     Dosage: 25 MILLIGRAM/SQ. METER
     Route: 041
  4. CISPLATIN. [Concomitant]
     Active Substance: CISPLATIN
     Dosage: IN 500 ML OF NORMAL SALINE
     Route: 041
  5. DEXAMETHASONE. [Concomitant]
     Active Substance: DEXAMETHASONE
     Indication: PREMEDICATION
     Dosage: 12 MILLIGRAM
     Route: 041
  6. ABRAXANE [Suspect]
     Active Substance: PACLITAXEL
     Indication: PANCREATIC CARCINOMA STAGE IV
     Dosage: 125 MILLIGRAM/SQ. METER
     Route: 041
  7. GEMCITABINE. [Concomitant]
     Active Substance: GEMCITABINE
     Indication: PANCREATIC CARCINOMA STAGE IV
     Dosage: IN 500 ML OF NORMAL SALINE
     Route: 041
  8. PALONOSETRON. [Concomitant]
     Active Substance: PALONOSETRON HYDROCHLORIDE
     Indication: PREMEDICATION
     Route: 041
  9. ONDANSETRON [Concomitant]
     Active Substance: ONDANSETRON
     Indication: PRODUCT USED FOR UNKNOWN INDICATION
     Dosage: 8 MILLIGRAM
     Route: 048
  10. FOSAPREPITANT [Concomitant]
     Active Substance: FOSAPREPITANT
     Indication: PREMEDICATION
     Dosage: 150 MILLIGRAM
     Route: 041
  11. PEGFILGRASTIM [Concomitant]
     Active Substance: PEGFILGRASTIM
     Indication: PRODUCT USED FOR UNKNOWN INDICATION
     Dosage: 6 MILLIGRAM
     Route: 058

REACTIONS (1)
  - Haemorrhagic stroke [Fatal]
